FAERS Safety Report 11916384 (Version 1)
Quarter: 2016Q1

REPORT INFORMATION
  Report Type: Report from Study
  Country: IN (occurrence: IN)
  Receive Date: 20160114
  Receipt Date: 20160114
  Transmission Date: 20160526
  Serious: Yes (Death, Hospitalization)
  Sender: FDA-Public Use
  Company Number: IN-ASTELLAS-2016US000946

PATIENT
  Age: 80 Year
  Sex: Male

DRUGS (1)
  1. ERLOTINIB [Suspect]
     Active Substance: ERLOTINIB
     Indication: LUNG NEOPLASM MALIGNANT
     Route: 048
     Dates: start: 201509, end: 20151223

REACTIONS (7)
  - Drug ineffective [Fatal]
  - Drug effect decreased [Fatal]
  - Asthenia [Fatal]
  - Vasoconstriction [Fatal]
  - Pulmonary oedema [Fatal]
  - Diarrhoea [Fatal]
  - Blood urine present [Fatal]

NARRATIVE: CASE EVENT DATE: 201512
